FAERS Safety Report 5060565-6 (Version None)
Quarter: 2006Q3

REPORT INFORMATION
  Report Type: 
  Country: None (occurrence: None)
  Receive Date: 20060721
  Receipt Date: 20060721
  Transmission Date: 20061208
  Serious: Yes (Disabling)
  Sender: FDA-Public Use
  Company Number: None

PATIENT
  Sex: Female
  Weight: 59.8748 kg

DRUGS (1)
  1. ZOMETA [Suspect]
     Indication: BREAST CANCER
     Dosage: 1X MONTH IV
     Route: 042
     Dates: start: 20020101, end: 20060601

REACTIONS (2)
  - JAW DISORDER [None]
  - OSTEONECROSIS [None]
